FAERS Safety Report 8651255 (Version 2)
Quarter: 2012Q4

REPORT INFORMATION
  Report Type: 
  Country: US (occurrence: US)
  Receive Date: 20120705
  Receipt Date: 20120829
  Transmission Date: 20130627
  Serious: Yes (Hospitalization, Other)
  Sender: FDA-Public Use
  Company Number: US-CELGENEUS-163-21880-12052545

PATIENT
  Age: 72 None
  Sex: Female

DRUGS (30)
  1. REVLIMID [Suspect]
     Indication: MULTIPLE MYELOMA
     Dosage: 5 Milligram
     Route: 048
     Dates: start: 201005, end: 20120430
  2. REVLIMID [Suspect]
     Dosage: 5 Milligram
     Route: 048
     Dates: start: 2012
  3. CYMBALTA [Concomitant]
     Indication: DRUG USE FOR UNKNOWN INDICATION
     Dosage: 60 Milligram
     Route: 065
  4. LYRICA [Concomitant]
     Indication: DRUG USE FOR UNKNOWN INDICATION
     Dosage: 50 Milligram
     Route: 065
  5. CELEBREX [Concomitant]
     Indication: DRUG USE FOR UNKNOWN INDICATION
     Dosage: 200 Milligram
     Route: 065
  6. PREVACID [Concomitant]
     Indication: DRUG USE FOR UNKNOWN INDICATION
     Dosage: 30 Milligram
     Route: 065
  7. VITAMIN B12 [Concomitant]
     Indication: DRUG USE FOR UNKNOWN INDICATION
     Route: 050
  8. METFORMIN [Concomitant]
     Indication: DRUG USE FOR UNKNOWN INDICATION
     Dosage: 500 Milligram
     Route: 065
  9. OXYCONTIN [Concomitant]
     Indication: DRUG USE FOR UNKNOWN INDICATION
     Route: 065
  10. LIPITOR [Concomitant]
     Indication: DRUG USE FOR UNKNOWN INDICATION
     Dosage: 40 Milligram
     Route: 065
  11. LASIX [Concomitant]
     Indication: DRUG USE FOR UNKNOWN INDICATION
     Route: 065
  12. MIRALAX [Concomitant]
     Indication: DRUG USE FOR UNKNOWN INDICATION
     Dosage: 17 Gram
     Route: 065
  13. RECLAST [Concomitant]
     Indication: DRUG USE FOR UNKNOWN INDICATION
     Route: 065
     Dates: end: 201010
  14. PREVNAR VACCINATION [Concomitant]
     Indication: DRUG USE FOR UNKNOWN INDICATION
     Route: 065
  15. VITAMIN D3 [Concomitant]
     Indication: DRUG USE FOR UNKNOWN INDICATION
     Dosage: 5000 units
     Route: 065
  16. EVOXAC [Concomitant]
     Indication: DRUG USE FOR UNKNOWN INDICATION
     Dosage: 30 Milligram
     Route: 065
  17. FIORICET [Concomitant]
     Indication: DRUG USE FOR UNKNOWN INDICATION
     Route: 065
  18. OXYCODONE [Concomitant]
     Indication: DRUG USE FOR UNKNOWN INDICATION
     Dosage: 10 Milligram
     Route: 065
  19. RANITIDINE [Concomitant]
     Indication: DRUG USE FOR UNKNOWN INDICATION
     Dosage: 300 Milligram
     Route: 065
  20. FUROSEMIDE [Concomitant]
     Indication: DRUG USE FOR UNKNOWN INDICATION
     Dosage: 40 Milligram
     Route: 065
  21. ASPIRIN [Concomitant]
     Indication: DRUG USE FOR UNKNOWN INDICATION
     Dosage: 81 Milligram
     Route: 065
  22. CENTRUM SILVER [Concomitant]
     Indication: DRUG USE FOR UNKNOWN INDICATION
     Route: 065
  23. VITAMIN C [Concomitant]
     Indication: DRUG USE FOR UNKNOWN INDICATION
     Route: 065
  24. CHROMIUM PICOLINATE [Concomitant]
     Indication: DRUG USE FOR UNKNOWN INDICATION
     Route: 065
  25. GAVISCON [Concomitant]
     Indication: STOOLS LOOSE
     Route: 065
  26. TYLENOL [Concomitant]
     Indication: DRUG USE FOR UNKNOWN INDICATION
     Route: 065
  27. STOOL SOFTENER [Concomitant]
     Indication: DRUG USE FOR UNKNOWN INDICATION
     Route: 065
  28. HYDROCODONE AND APAP [Concomitant]
     Indication: DRUG USE FOR UNKNOWN INDICATION
     Dosage: 5/325mg
     Route: 065
  29. CALTRATE WITH VITAMIN D [Concomitant]
     Indication: DRUG USE FOR UNKNOWN INDICATION
     Route: 065
  30. CITRUCEL [Concomitant]
     Indication: DRUG USE FOR UNKNOWN INDICATION
     Route: 065

REACTIONS (2)
  - Convulsion [Unknown]
  - Pancytopenia [Unknown]
